FAERS Safety Report 11944181 (Version 1)
Quarter: 2016Q1

REPORT INFORMATION
  Report Type: Spontaneous
  Country: US (occurrence: US)
  Receive Date: 20160125
  Receipt Date: 20160125
  Transmission Date: 20160526
  Serious: No
  Sender: FDA-Public Use
  Company Number: US-BAYER-2016-013987

PATIENT
  Age: 88 Year
  Sex: Female
  Weight: 53.52 kg

DRUGS (6)
  1. MIRALAX [Suspect]
     Active Substance: POLYETHYLENE GLYCOL 3350
     Indication: CONSTIPATION
     Dosage: 1 DOSE, QOD
     Route: 048
  2. CALCIUM WITH VITAMIN D [Concomitant]
     Active Substance: CALCIUM\VITAMIN D
  3. SIMVASTATIN. [Concomitant]
     Active Substance: SIMVASTATIN
  4. VALSARTAN. [Concomitant]
     Active Substance: VALSARTAN
  5. VERAPAMIL [Concomitant]
     Active Substance: VERAPAMIL HYDROCHLORIDE
     Dosage: UNK
  6. ONE A DAY WOMENS VITACRAVES GUMMIES [Concomitant]
     Active Substance: MINERALS\VITAMINS

REACTIONS (1)
  - Blood pressure increased [None]
